FAERS Safety Report 12845577 (Version 1)
Quarter: 2016Q4

REPORT INFORMATION
  Report Type: Spontaneous
  Country: US (occurrence: US)
  Receive Date: 20161013
  Receipt Date: 20161013
  Transmission Date: 20170207
  Serious: No
  Sender: FDA-Public Use
  Company Number: US-JAZZ-2016-US-013784

PATIENT
  Sex: Female

DRUGS (10)
  1. MULTIPLE VITAMINS [Concomitant]
     Active Substance: VITAMINS
  2. ASPIRIN. [Concomitant]
     Active Substance: ASPIRIN
  3. XYREM [Suspect]
     Active Substance: SODIUM OXYBATE
     Dosage: 3 G, BID
     Route: 048
     Dates: start: 201504, end: 2015
  4. RANITIDINE. [Concomitant]
     Active Substance: RANITIDINE
  5. NIACIN. [Concomitant]
     Active Substance: NIACIN
  6. VITAMIN E [Concomitant]
     Active Substance: .ALPHA.-TOCOPHEROL
  7. XANAX [Concomitant]
     Active Substance: ALPRAZOLAM
  8. XYREM [Suspect]
     Active Substance: SODIUM OXYBATE
     Indication: NARCOLEPSY
     Dosage: 2.25 G, BID
     Route: 048
     Dates: start: 201503, end: 201504
  9. TRAZODONE [Concomitant]
     Active Substance: TRAZODONE HYDROCHLORIDE
  10. CITALOPRAM [Concomitant]
     Active Substance: CITALOPRAM HYDROBROMIDE

REACTIONS (1)
  - Drug ineffective [Unknown]
